FAERS Safety Report 6416888-9 (Version None)
Quarter: 2009Q4

REPORT INFORMATION
  Report Type: 
  Country: None (occurrence: None)
  Receive Date: 20091023
  Receipt Date: 20091001
  Transmission Date: 20100525
  Serious: Yes (Other)
  Sender: FDA-Public Use
  Company Number: LMI-2009-00284

PATIENT
  Age: 49 Year
  Sex: Female

DRUGS (1)
  1. VASOVIST (GADOFOSBESET TRISODIUM) [Suspect]
     Dosage: CONCENTRATION 0.25 MMOL/L (10 ML)

REACTIONS (3)
  - COUGH [None]
  - DYSPNOEA [None]
  - NASAL OEDEMA [None]
